FAERS Safety Report 22236266 (Version 1)
Quarter: 2023Q2

REPORT INFORMATION
  Report Type: Report from Study
  Country: NL (occurrence: NL)
  Receive Date: 20230420
  Receipt Date: 20230420
  Transmission Date: 20230721
  Serious: Yes (Hospitalization)
  Sender: FDA-Public Use
  Company Number: NL-VER-202200136

PATIENT
  Age: 83 Year
  Sex: Male

DRUGS (11)
  1. TRIPTORELIN PAMOATE [Suspect]
     Active Substance: TRIPTORELIN PAMOATE
     Indication: Prostate cancer
     Dosage: 22.5 MG (22.5 MG , 24 WEEKS) (SPECIFICATION NEEDLE: 20 G)
     Route: 030
     Dates: start: 20210608
  2. DALTEPARINE [Concomitant]
     Indication: Product used for unknown indication
     Dosage: 1XDD1 X 12.500IE (1D)
     Route: 065
  3. LACTITOL [Concomitant]
     Active Substance: LACTITOL
     Indication: Product used for unknown indication
     Dosage: 1XDD2 X 10 MG (10 MG,12 HR
     Route: 065
  4. FERRI CARBOXYMALTOSE [Concomitant]
     Indication: Product used for unknown indication
     Dosage: 50 MGFE ONCE A WEEK
     Route: 065
  5. LANTHANUM CARBONATE [Concomitant]
     Active Substance: LANTHANUM CARBONATE
     Indication: Product used for unknown indication
     Dosage: 2XDD2 X 750 MG (2 DOSAGE FORMS,12 HR)
     Route: 065
  6. SEVELAMER CARBONATE [Concomitant]
     Active Substance: SEVELAMER CARBONATE
     Indication: Product used for unknown indication
     Dosage: 1XDD3 X 800 MG (800 MG,8 HR)
     Route: 065
  7. ENZALUTAMIDE [Concomitant]
     Active Substance: ENZALUTAMIDE
     Indication: Product used for unknown indication
     Dosage: 1XDD1 X 40 MG (40 MG,1 D)
     Route: 065
  8. DARBEPOETIN ALFA [Concomitant]
     Active Substance: DARBEPOETIN ALFA
     Indication: Product used for unknown indication
     Dosage: 1XWKN X 60 MCG (60 MCG,1 WK)
     Route: 065
  9. FRAGMIN [Concomitant]
     Active Substance: DALTEPARIN SODIUM
     Indication: Product used for unknown indication
     Route: 065
  10. VITAMINS [Concomitant]
     Active Substance: VITAMINS
     Indication: Product used for unknown indication
     Route: 065
  11. XTANDI [Concomitant]
     Active Substance: ENZALUTAMIDE
     Indication: Product used for unknown indication
     Route: 065

REACTIONS (4)
  - Bone contusion [Unknown]
  - Haematoma [Recovered/Resolved]
  - Fall [Unknown]
  - Orthostatic hypotension [Recovering/Resolving]

NARRATIVE: CASE EVENT DATE: 20220101
